FAERS Safety Report 7299025-0 (Version None)
Quarter: 2011Q1

REPORT INFORMATION
  Report Type: 
  Country: None (occurrence: None)
  Receive Date: 20110209
  Receipt Date: 20110127
  Transmission Date: 20110831
  Serious: Yes (Other)
  Sender: FDA-Public Use
  Company Number: 2011SP002449

PATIENT
  Age: 54 Year
  Sex: Female
  Weight: 69.3 kg

DRUGS (3)
  1. RIBAVIRIN [Suspect]
     Indication: HEPATITIS C
     Dosage: PO
     Route: 048
  2. KETOPROFEN [Suspect]
     Indication: PAIN
  3. PEG-INTRON [Suspect]
     Indication: HEPATITIS C
     Dosage: QW;SC
     Route: 058
     Dates: start: 20100303

REACTIONS (20)
  - WEIGHT DECREASED [None]
  - SKIN DISCOLOURATION [None]
  - HEADACHE [None]
  - FLUID INTAKE REDUCED [None]
  - FALL [None]
  - PAIN [None]
  - PAIN IN EXTREMITY [None]
  - ALOPECIA [None]
  - INFECTION IN AN IMMUNOCOMPROMISED HOST [None]
  - DRUG INTERACTION [None]
  - CANDIDIASIS [None]
  - BLOOD PRESSURE INCREASED [None]
  - NASOPHARYNGITIS [None]
  - FATIGUE [None]
  - NAIL DISORDER [None]
  - SYNCOPE [None]
  - CHILLS [None]
  - DEPRESSION [None]
  - HAEMATOMA [None]
  - ABDOMINAL PAIN UPPER [None]
